FAERS Safety Report 9695215 (Version 3)
Quarter: 2013Q4

REPORT INFORMATION
  Report Type: Spontaneous
  Country: JP (occurrence: JP)
  Receive Date: 20131119
  Receipt Date: 20131211
  Transmission Date: 20140711
  Serious: Yes (Death, Life-Threatening, Hospitalization)
  Sender: FDA-Public Use
  Company Number: JP-BAYER-2013-139500

PATIENT
  Age: 74 Year
  Sex: Female
  Weight: 40 kg

DRUGS (6)
  1. STIVARGA [Suspect]
     Indication: COLORECTAL CANCER
     Dosage: 160 MG, QD (ON FOR 3 WEEKS AND OFF FOR 1 WEEK)
     Route: 048
     Dates: start: 20131024, end: 20131106
  2. ROHYPNOL [Concomitant]
     Dosage: DAILY DOSE 2 MG
     Route: 048
     Dates: start: 20090528
  3. MIRTAZAPINE [Concomitant]
     Dosage: DAILY DOSE 30 MG
     Route: 048
     Dates: start: 20120906
  4. AMOBAN [Concomitant]
     Dosage: DAILY DOSE 7.5 MG
     Route: 048
     Dates: start: 20120906
  5. DOGMATYL [Concomitant]
     Dosage: DAILY DOSE 50 MG
     Route: 048
     Dates: start: 20071122
  6. WYPAX [Concomitant]
     Dosage: DAILY DOSE .5 MG
     Route: 048
     Dates: start: 20071122

REACTIONS (6)
  - Hepatic function abnormal [Recovering/Resolving]
  - Platelet count decreased [Not Recovered/Not Resolved]
  - Renal impairment [Not Recovered/Not Resolved]
  - Disseminated intravascular coagulation [Fatal]
  - Atrial fibrillation [Not Recovered/Not Resolved]
  - Cerebral infarction [Not Recovered/Not Resolved]
